FAERS Safety Report 23319380 (Version 2)
Quarter: 2024Q2

REPORT INFORMATION
  Report Type: Report from Study
  Country: US (occurrence: US)
  Receive Date: 20231220
  Receipt Date: 20240608
  Transmission Date: 20240715
  Serious: Yes (Hospitalization, Other)
  Sender: FDA-Public Use
  Company Number: US-ABBVIE-4713269

PATIENT
  Sex: Female

DRUGS (2)
  1. HUMIRA [Suspect]
     Active Substance: ADALIMUMAB
     Indication: Rheumatoid arthritis
     Dosage: CITRATE FREE?FORM STRENGTH: 40 MG
     Route: 058
     Dates: start: 2023
  2. HUMIRA [Suspect]
     Active Substance: ADALIMUMAB
     Dosage: CITRATE FREE?FORM STRENGTH: 40 MG
     Route: 058
     Dates: start: 20220714, end: 2023

REACTIONS (5)
  - Spinal fusion surgery [Recovering/Resolving]
  - Pain [Unknown]
  - Tendonitis [Unknown]
  - Road traffic accident [Unknown]
  - Scoliosis [Unknown]

NARRATIVE: CASE EVENT DATE: 20230101
